FAERS Safety Report 22350862 (Version 1)
Quarter: 2023Q2

REPORT INFORMATION
  Report Type: Spontaneous
  Country: US (occurrence: None)
  Receive Date: 20230521
  Receipt Date: 20230521
  Transmission Date: 20230722
  Serious: Yes (Life-Threatening)
  Sender: FDA-Public Use
  Company Number: None

PATIENT
  Sex: 0

DRUGS (1)
  1. AMMONIA INHALANTS [Suspect]
     Active Substance: AMMONIA

REACTIONS (3)
  - Dyspnoea [None]
  - Vomiting [None]
  - Anxiety [None]

NARRATIVE: CASE EVENT DATE: 20230518
